FAERS Safety Report 13393701 (Version 2)
Quarter: 2017Q2

REPORT INFORMATION
  Report Type: Report from Study
  Country: GT (occurrence: GT)
  Receive Date: 20170331
  Receipt Date: 20170526
  Transmission Date: 20170830
  Serious: Yes (Death, Hospitalization)
  Sender: FDA-Public Use
  Company Number: GT-ACTELION-A-US2017-151905

PATIENT
  Age: 28 Year
  Sex: Female

DRUGS (1)
  1. VENTAVIS [Suspect]
     Active Substance: ILOPROST
     Indication: PULMONARY HYPERTENSION
     Dosage: 2 DF, UNK
     Route: 055
     Dates: start: 20161028, end: 20170325

REACTIONS (4)
  - Dyspnoea [Unknown]
  - Cardio-respiratory arrest [Fatal]
  - Jugular vein distension [Unknown]
  - Product use issue [Unknown]

NARRATIVE: CASE EVENT DATE: 20170327
